FAERS Safety Report 5236596-X (Version None)
Quarter: 2007Q1

REPORT INFORMATION
  Report Type: 
  Country: None (occurrence: None)
  Receive Date: 20070208
  Receipt Date: 20070201
  Transmission Date: 20070707
  Serious: Yes (Hospitalization)
  Sender: FDA-Public Use
  Company Number: 234856

PATIENT
  Age: 64 Year
  Sex: Male

DRUGS (2)
  1. RAPTIVA [Suspect]
     Indication: PSORIASIS
     Dates: start: 20060201, end: 20060801
  2. RAPTIVA [Suspect]
     Indication: PSORIASIS
     Dates: start: 20070109

REACTIONS (5)
  - BIOPSY SKIN ABNORMAL [None]
  - HERPES ZOSTER [None]
  - IMPAIRED HEALING [None]
  - LOWER LIMB FRACTURE [None]
  - SKIN LACERATION [None]
